FAERS Safety Report 15706030 (Version 1)
Quarter: 2018Q4

REPORT INFORMATION
  Report Type: Report from Study
  Country: US (occurrence: US)
  Receive Date: 20181210
  Receipt Date: 20181210
  Transmission Date: 20190205
  Serious: No
  Sender: FDA-Public Use
  Company Number: US-ALEXION PHARMACEUTICALS INC.-A201816247

PATIENT
  Sex: Female

DRUGS (1)
  1. STRENSIQ [Suspect]
     Active Substance: ASFOTASE ALFA
     Indication: PRODUCT USED FOR UNKNOWN INDICATION
     Route: 065

REACTIONS (7)
  - Fatigue [Unknown]
  - Back pain [Unknown]
  - Arthralgia [Unknown]
  - Myalgia [Unknown]
  - Weight increased [Unknown]
  - Decreased appetite [Unknown]
  - Insomnia [Unknown]
